FAERS Safety Report 7255959-4 (Version None)
Quarter: 2011Q1

REPORT INFORMATION
  Report Type: 
  Country: None (occurrence: None)
  Receive Date: 20110129
  Receipt Date: 20100617
  Transmission Date: 20110831
  Serious: No
  Sender: FDA-Public Use
  Company Number: US-ABBOTT-10P-163-0648515-00

PATIENT
  Sex: Female
  Weight: 49.94 kg

DRUGS (3)
  1. HUMIRA [Suspect]
     Dates: start: 20100515
  2. HUMIRA [Suspect]
     Indication: RHEUMATOID ARTHRITIS
     Dates: start: 20050101, end: 20100515
  3. MEDROL [Concomitant]
     Indication: PRODUCT USED FOR UNKNOWN INDICATION
     Dosage: 4 MG DAILY

REACTIONS (2)
  - RHEUMATOID ARTHRITIS [None]
  - JOINT SWELLING [None]
